FAERS Safety Report 26141418 (Version 1)
Quarter: 2025Q4

REPORT INFORMATION
  Report Type: Spontaneous
  Country: US (occurrence: None)
  Receive Date: 20251210
  Receipt Date: 20251210
  Transmission Date: 20260118
  Serious: Yes (unspecified)
  Sender: FDA-CTU
  Company Number: None

PATIENT
  Age: 78 Year
  Sex: Male
  Weight: 77 kg

DRUGS (1)
  1. FORTAMET [Suspect]
     Active Substance: METFORMIN HYDROCHLORIDE
     Dosage: FREQUENCY : TWICE A DAY;
     Route: 048
     Dates: start: 20240413, end: 20250806

REACTIONS (2)
  - Lactic acidosis [None]
  - Agitation [None]

NARRATIVE: CASE EVENT DATE: 20250806
